FAERS Safety Report 9443296 (Version 4)
Quarter: 2015Q2

REPORT INFORMATION
  Report Type: Spontaneous
  Country: US (occurrence: US)
  Receive Date: 20130806
  Receipt Date: 20150521
  Transmission Date: 20150821
  Serious: Yes (Other)
  Sender: FDA-Public Use
  Company Number: US-GLAXOSMITHKLINE-A1035431A

PATIENT
  Age: 67 Year
  Sex: Male

DRUGS (15)
  1. ADVAIR DISKUS [Suspect]
     Active Substance: FLUTICASONE PROPIONATE\SALMETEROL XINAFOATE
     Indication: CHRONIC OBSTRUCTIVE PULMONARY DISEASE
     Dosage: 500/50 MCG
     Route: 055
     Dates: start: 2003
  2. GLIMEPIRIDE. [Concomitant]
     Active Substance: GLIMEPIRIDE
  3. ADVAIR DISKUS [Suspect]
     Active Substance: FLUTICASONE PROPIONATE\SALMETEROL XINAFOATE
     Dates: start: 2003
  4. LOVASTATIN. [Concomitant]
     Active Substance: LOVASTATIN
  5. PROAIR HFA [Concomitant]
     Active Substance: ALBUTEROL SULFATE
  6. FLUOXETINE [Concomitant]
     Active Substance: FLUOXETINE\FLUOXETINE HYDROCHLORIDE
  7. FUROSEMIDE. [Concomitant]
     Active Substance: FUROSEMIDE
  8. METFORMIN [Concomitant]
     Active Substance: METFORMIN HYDROCHLORIDE
  9. INDOMETHACIN. [Concomitant]
     Active Substance: INDOMETHACIN
  10. HYDROCODONE [Concomitant]
     Active Substance: HYDROCODONE
  11. SPIRIVA [Concomitant]
     Active Substance: TIOTROPIUM BROMIDE MONOHYDRATE
  12. ASPIRIN. [Concomitant]
     Active Substance: ASPIRIN
  13. ENALAPRIL [Concomitant]
     Active Substance: ENALAPRIL
  14. LEVOTHYROXINE [Concomitant]
     Active Substance: LEVOTHYROXINE
  15. METOPROLOL [Concomitant]
     Active Substance: METOPROLOL

REACTIONS (9)
  - Dysphonia [Unknown]
  - Oropharyngeal pain [Not Recovered/Not Resolved]
  - Adverse event [Unknown]
  - Speech disorder [Unknown]
  - Choking [Unknown]
  - Paranasal sinus hypersecretion [Unknown]
  - Throat cancer [Unknown]
  - Pneumonia [Unknown]
  - Throat irritation [Unknown]

NARRATIVE: CASE EVENT DATE: 2009
